FAERS Safety Report 15263797 (Version 21)
Quarter: 2020Q4

REPORT INFORMATION
  Report Type: Other
  Country: DE (occurrence: DE)
  Receive Date: 20180810
  Receipt Date: 20201231
  Transmission Date: 20210113
  Serious: Yes (Other)
  Sender: FDA-Public Use
  Company Number: DE-ROCHE-2126374

PATIENT
  Age: 39 Year
  Sex: Female
  Weight: 75 kg

DRUGS (19)
  1. OCREVUS [Suspect]
     Active Substance: OCRELIZUMAB
     Route: 042
     Dates: start: 202006
  2. LYRICA [Suspect]
     Active Substance: PREGABALIN
     Dosage: 50 MG IN THE MORNING, 75 MG IN THE EVENING
     Route: 048
  3. OCREVUS [Suspect]
     Active Substance: OCRELIZUMAB
     Route: 042
     Dates: start: 20180522
  4. OXCARBAZEPIN [Concomitant]
     Active Substance: OXCARBAZEPINE
     Indication: TRIGEMINAL NEURALGIA
     Dosage: 150 MG-0-100 MG
  5. LYRICA [Suspect]
     Active Substance: PREGABALIN
     Dosage: 25 MG IN THE MORNING, 75 MG IN THE EVENING
     Route: 048
  6. L-THYROXINE [Concomitant]
     Active Substance: LEVOTHYROXINE
     Indication: HYPOTHYROIDISM
     Dosage: 1-0-0
     Route: 048
  7. LYRICA [Suspect]
     Active Substance: PREGABALIN
     Route: 048
  8. OCREVUS [Suspect]
     Active Substance: OCRELIZUMAB
     Route: 042
     Dates: start: 20190605
  9. BACLOFEN. [Concomitant]
     Active Substance: BACLOFEN
     Indication: MUSCLE SPASTICITY
     Dosage: 0-0-1
  10. OXCARBAZEPIN [Concomitant]
     Active Substance: OXCARBAZEPINE
     Indication: PAIN
     Dosage: 1-0-1
  11. NORSPAN [Concomitant]
     Active Substance: BUPRENORPHINE
     Indication: PAIN
     Dosage: WEEKLY REPLACEMENT
     Route: 062
  12. CARVEDILOL. [Concomitant]
     Active Substance: CARVEDILOL
     Dosage: IN THE MORNING
  13. OCREVUS [Suspect]
     Active Substance: OCRELIZUMAB
     Indication: RELAPSING-REMITTING MULTIPLE SCLEROSIS
     Dosage: SECOND INFUSION ON 22/MAY/2018
     Route: 042
     Dates: start: 20180508, end: 201805
  14. OCREVUS [Suspect]
     Active Substance: OCRELIZUMAB
     Route: 042
     Dates: start: 20181126
  15. LYRICA [Suspect]
     Active Substance: PREGABALIN
     Indication: PAIN
     Dosage: 100MG-0-150MG
     Route: 048
  16. CARVEDILOL. [Concomitant]
     Active Substance: CARVEDILOL
     Indication: HYPERTENSION
     Dosage: 1-0-0
     Route: 048
  17. LYRICA [Suspect]
     Active Substance: PREGABALIN
     Dosage: 75MG-0-125MG
     Route: 048
     Dates: start: 20190308
  18. CARVEDILOL. [Concomitant]
     Active Substance: CARVEDILOL
     Route: 048
  19. PARACODIN [Concomitant]

REACTIONS (40)
  - Hypotension [Not Recovered/Not Resolved]
  - Abscess oral [Recovered/Resolved]
  - Fatigue [Not Recovered/Not Resolved]
  - Hypersensitivity [Recovered/Resolved]
  - Fatigue [Recovered/Resolved]
  - Tooth fracture [Recovered/Resolved]
  - Automatic bladder [Recovered/Resolved]
  - Paralysis [Recovered/Resolved]
  - Renal cyst [Not Recovered/Not Resolved]
  - Mitral valve incompetence [Not Recovered/Not Resolved]
  - Blood cholesterol increased [Recovering/Resolving]
  - Lymphocyte count decreased [Unknown]
  - Abscess [Recovered/Resolved]
  - Drug ineffective [Unknown]
  - Eczema [Recovered/Resolved]
  - Viral titre decreased [Recovered/Resolved]
  - Dysuria [Recovered/Resolved]
  - Sensory disturbance [Not Recovered/Not Resolved]
  - Vascular calcification [Not Recovered/Not Resolved]
  - Neutrophil count increased [Recovering/Resolving]
  - Pulpitis dental [Recovered/Resolved]
  - Trigeminal neuralgia [Unknown]
  - Blood blister [Recovered/Resolved]
  - Auditory disorder [Recovered/Resolved]
  - Multiple sclerosis relapse [Not Recovered/Not Resolved]
  - Vocal cord inflammation [Recovered/Resolved]
  - Bladder disorder [Unknown]
  - Skin papilloma [Recovered/Resolved]
  - Abdominal pain upper [Recovered/Resolved]
  - Nausea [Recovered/Resolved]
  - Neurodermatitis [Unknown]
  - Lymphoedema [Not Recovered/Not Resolved]
  - Chest pain [Not Recovered/Not Resolved]
  - Multiple sclerosis [Not Recovered/Not Resolved]
  - Weight increased [Not Recovered/Not Resolved]
  - Agitation [Recovered/Resolved]
  - Lipoedema [Not Recovered/Not Resolved]
  - Menstruation delayed [Recovered/Resolved]
  - Neuralgia [Recovered/Resolved]
  - Dental fistula [Recovered/Resolved]

NARRATIVE: CASE EVENT DATE: 20180508
